FAERS Safety Report 7333864-2 (Version None)
Quarter: 2011Q1

REPORT INFORMATION
  Report Type: 
  Country: None (occurrence: None)
  Receive Date: 20110307
  Receipt Date: 20110225
  Transmission Date: 20110831
  Serious: Yes (Hospitalization)
  Sender: FDA-Public Use
  Company Number: FI-BIOGENIDEC-2011BI002119

PATIENT
  Age: 40 Year
  Sex: Female
  Weight: 78 kg

DRUGS (9)
  1. ANTIBIOTICS [Concomitant]
     Indication: URINARY TRACT INFECTION
  2. YASMIN [Concomitant]
     Indication: CONTRACEPTION
  3. ASA [Concomitant]
  4. TYSABRI [Suspect]
     Indication: MULTIPLE SCLEROSIS
     Route: 042
     Dates: start: 20070829, end: 20110110
  5. SIRDALUD [Concomitant]
     Indication: MUSCLE SPASTICITY
  6. TOLTERODINE TARTRATE [Concomitant]
     Indication: BLADDER DYSFUNCTION
  7. HIPEKSAL [Concomitant]
  8. BACLOFEN [Concomitant]
     Indication: MUSCLE SPASTICITY
  9. TOVIAZ [Concomitant]

REACTIONS (2)
  - LYMPHADENOPATHY [None]
  - MALIGNANT MELANOMA [None]
